FAERS Safety Report 6945322-5 (Version None)
Quarter: 2010Q3

REPORT INFORMATION
  Report Type: 
  Country: None (occurrence: None)
  Receive Date: 20100827
  Receipt Date: 20100112
  Transmission Date: 20110219
  Serious: Yes (Death, Hospitalization)
  Sender: FDA-Public Use
  Company Number: AU-ROCHE-656154

PATIENT
  Age: 38 Year
  Sex: Male

DRUGS (3)
  1. TAMIFLU [Suspect]
     Route: 065
  2. TAMIFLU [Suspect]
     Route: 065
  3. TAMIFLU [Suspect]
     Dosage: ON HOSPITAL DAY 11
     Route: 065

REACTIONS (2)
  - PATHOGEN RESISTANCE [None]
  - SEPSIS [None]
